FAERS Safety Report 5029399-2 (Version None)
Quarter: 2006Q2

REPORT INFORMATION
  Report Type: 
  Country: None (occurrence: None)
  Receive Date: 20060614
  Receipt Date: 20060601
  Transmission Date: 20061013
  Serious: Yes (Disabling, Other)
  Sender: FDA-Public Use
  Company Number: 2006051431

PATIENT
  Age: 59 Year
  Sex: Male
  Weight: 81.6475 kg

DRUGS (8)
  1. CADUET [Suspect]
     Indication: BLOOD CHOLESTEROL INCREASED
     Dosage: 10 MG/ 80 MG (1 IN 1 D), ORAL
     Route: 048
     Dates: start: 20050101
  2. CADUET [Suspect]
     Indication: HYPERTENSION
     Dosage: 10 MG/ 80 MG (1 IN 1 D), ORAL
     Route: 048
     Dates: start: 20050101
  3. HYDROCHLOROTHIAZIDE [Concomitant]
  4. RANITIDINE [Concomitant]
  5. PREDNISONE TAB [Concomitant]
  6. INDOMETHACIN [Concomitant]
  7. ISOSORBIDE [Concomitant]
  8. HYDRALAZINE HCL [Concomitant]

REACTIONS (4)
  - ANKYLOSING SPONDYLITIS [None]
  - CONDITION AGGRAVATED [None]
  - SPINAL OSTEOARTHRITIS [None]
  - TREATMENT NONCOMPLIANCE [None]
